FAERS Safety Report 25988037 (Version 1)
Quarter: 2025Q4

REPORT INFORMATION
  Report Type: Spontaneous
  Country: EU (occurrence: EU)
  Receive Date: 20251103
  Receipt Date: 20251103
  Transmission Date: 20260118
  Serious: Yes (Hospitalization, Disabling, Other)
  Sender: UCB
  Company Number: EU-THERAMEX-2024000373

PATIENT
  Age: 53 Year

DRUGS (15)
  1. KEPPRA [Suspect]
     Active Substance: LEVETIRACETAM
     Indication: Epilepsy
     Dosage: TWO KEPPRA TABLETS PER DAY
  2. KEPPRA [Suspect]
     Active Substance: LEVETIRACETAM
     Indication: Epilepsy
     Dosage: UNK (1 TABLET IN THE MORNING AND THE EVENING, FOR 1 MONTH, TO BE RENEWED TWICE)
  3. KEPPRA [Suspect]
     Active Substance: LEVETIRACETAM
     Dosage: 1 ML OR 100MG EVENING MEALIF YOU FEEL UNWELL: SWITCH TO 1 ML 60 MG MORNING AND EVENING WITH MEALS
  4. LEVETIRACETAM [Suspect]
     Active Substance: LEVETIRACETAM
     Indication: Epilepsy
     Dosage: 500 MILLIGRAM
  5. LEVETIRACETAM [Suspect]
     Active Substance: LEVETIRACETAM
     Dosage: UNK
  6. NOMEGESTROL ACETATE [Suspect]
     Active Substance: NOMEGESTROL ACETATE
     Indication: Intermenstrual bleeding
     Dosage: UNK
  7. NOMEGESTROL ACETATE [Suspect]
     Active Substance: NOMEGESTROL ACETATE
     Indication: Heavy menstrual bleeding
     Dosage: UNK
  8. NOMEGESTROL ACETATE [Suspect]
     Active Substance: NOMEGESTROL ACETATE
  9. CHLORMADINONE ACETATE [Suspect]
     Active Substance: CHLORMADINONE ACETATE
     Indication: Intermenstrual bleeding
  10. PROMEGESTONE [Suspect]
     Active Substance: PROMEGESTONE
     Indication: Intermenstrual bleeding
  11. PROMEGESTONE [Suspect]
     Active Substance: PROMEGESTONE
     Indication: Heavy menstrual bleeding
     Dosage: UNK
  12. PROMEGESTONE [Suspect]
     Active Substance: PROMEGESTONE
     Dosage: UNK
  13. PROMEGESTONE [Suspect]
     Active Substance: PROMEGESTONE
     Dosage: UNK
  14. NOMEGESTROL ACETATE [Suspect]
     Active Substance: NOMEGESTROL ACETATE
     Indication: Intermenstrual bleeding
  15. NOMEGESTROL ACETATE [Suspect]
     Active Substance: NOMEGESTROL ACETATE
     Indication: Heavy menstrual bleeding

REACTIONS (20)
  - Meningioma benign [Recovered/Resolved with Sequelae]
  - Partial seizures [Unknown]
  - Meningioma surgery [Unknown]
  - Reading disorder [Unknown]
  - Impaired quality of life [Unknown]
  - Mental disorder [Unknown]
  - Oedema [Unknown]
  - Language disorder [Not Recovered/Not Resolved]
  - Malaise [Unknown]
  - Asthenia [Not Recovered/Not Resolved]
  - Cognitive disorder [Unknown]
  - Disturbance in attention [Unknown]
  - Aphasia [Unknown]
  - Feeling abnormal [Unknown]
  - Fatigue [Unknown]
  - Executive dysfunction [Unknown]
  - Dysgraphia [Unknown]
  - Memory impairment [Unknown]
  - Poor quality sleep [Unknown]
  - Aphasia [Unknown]
